FAERS Safety Report 8192594-8 (Version None)
Quarter: 2012Q1

REPORT INFORMATION
  Report Type: 
  Country: None (occurrence: None)
  Receive Date: 20120221
  Receipt Date: 20111102
  Transmission Date: 20120608
  Serious: No
  Sender: FDA-Public Use
  Company Number: 1000025150

PATIENT
  Age: 37 Year
  Sex: Female

DRUGS (4)
  1. VIIBRYD [Suspect]
     Indication: DEPRESSION
     Dosage: 5 MG (5 MG, 1 IN 1 D), ORAL
     Route: 048
     Dates: start: 20111001, end: 20111005
  2. TOPAMAX (TOPIRAMATE) (200 MILLIGRAM, TABLETS) (TOPIRAMATE) [Concomitant]
  3. ENABLEX [Suspect]
     Indication: URINARY INCONTINENCE
     Dates: start: 20111001
  4. ADDERALL (OBETROL) (OBETROL) [Concomitant]

REACTIONS (4)
  - SWELLING [None]
  - PARAESTHESIA [None]
  - BREAST ATROPHY [None]
  - DIARRHOEA [None]
